FAERS Safety Report 21506956 (Version 2)
Quarter: 2023Q2

REPORT INFORMATION
  Report Type: Report from Study
  Country: ZA (occurrence: ZA)
  Receive Date: 20221026
  Receipt Date: 20230402
  Transmission Date: 20230722
  Serious: Yes (Other)
  Sender: FDA-Public Use
  Company Number: ZA-NOVARTISPH-NVSC2022ZA236707

PATIENT
  Age: 47 Year
  Sex: Female

DRUGS (2)
  1. RIBOCICLIB [Suspect]
     Active Substance: RIBOCICLIB
     Indication: Breast cancer
     Dosage: 600 MG, QD
     Route: 048
     Dates: start: 20220113
  2. LETROZOLE [Suspect]
     Active Substance: LETROZOLE
     Indication: Product used for unknown indication
     Dosage: UNK
     Route: 065

REACTIONS (21)
  - Renal impairment [Unknown]
  - Mood swings [Unknown]
  - Bone pain [Unknown]
  - Tumour marker increased [Unknown]
  - Hot flush [Recovering/Resolving]
  - Anaemia [Unknown]
  - Insomnia [Unknown]
  - Skin exfoliation [Unknown]
  - Abdominal distension [Unknown]
  - Cystitis [Unknown]
  - Depression [Unknown]
  - Red blood cell count abnormal [Unknown]
  - Peripheral swelling [Unknown]
  - Headache [Unknown]
  - Fatigue [Unknown]
  - Vomiting [Unknown]
  - Asthenia [Unknown]
  - Chills [Recovering/Resolving]
  - Nausea [Unknown]
  - Rash pruritic [Unknown]
  - Hypersensitivity [Unknown]

NARRATIVE: CASE EVENT DATE: 20220113
